FAERS Safety Report 15426168 (Version 1)
Quarter: 2018Q3

REPORT INFORMATION
  Report Type: Spontaneous
  Country: US (occurrence: US)
  Receive Date: 20180925
  Receipt Date: 20180925
  Transmission Date: 20181010
  Serious: No
  Sender: FDA-Public Use
  Company Number: US-INDIVIOR LIMITED-INDV-103699-2017

PATIENT
  Sex: Male

DRUGS (1)
  1. SUBOXONE [Suspect]
     Active Substance: BUPRENORPHINE HYDROCHLORIDE\NALOXONE HYDROCHLORIDE
     Indication: PRODUCT USED FOR UNKNOWN INDICATION
     Dosage: TWO 8 MG FILMS, PER DAY
     Route: 060
     Dates: end: 20170731

REACTIONS (4)
  - Anxiety [Unknown]
  - Intentional underdose [Recovered/Resolved]
  - Spinal disorder [Unknown]
  - Fear of death [Unknown]

NARRATIVE: CASE EVENT DATE: 20170731
